FAERS Safety Report 13598684 (Version 1)
Quarter: 2017Q2

REPORT INFORMATION
  Report Type: Spontaneous
  Country: GB (occurrence: GB)
  Receive Date: 20170531
  Receipt Date: 20170531
  Transmission Date: 20170830
  Serious: Yes (Hospitalization, Other)
  Sender: FDA-Public Use
  Company Number: GB-PFIZER INC-2017235050

PATIENT
  Age: 14 Year
  Sex: Female

DRUGS (2)
  1. SOLIRIS [Suspect]
     Active Substance: ECULIZUMAB
     Indication: PAROXYSMAL NOCTURNAL HAEMOGLOBINURIA
     Dosage: UNK
     Route: 042
     Dates: start: 20160926
  2. DEFEROXAMINE MESILATE [Suspect]
     Active Substance: DEFEROXAMINE MESYLATE
     Indication: CHELATION THERAPY
     Dosage: UNK
     Route: 065

REACTIONS (12)
  - Vaginal haemorrhage [Unknown]
  - Oedema [Unknown]
  - Microangiopathy [Unknown]
  - Back pain [Unknown]
  - Blood creatinine abnormal [Recovering/Resolving]
  - Delayed engraftment [Unknown]
  - Renal impairment [Unknown]
  - Fluid imbalance [Unknown]
  - Haematuria [Unknown]
  - Urinary tract infection [Recovering/Resolving]
  - Renal tubular acidosis [Unknown]
  - Thrombotic microangiopathy [Unknown]

NARRATIVE: CASE EVENT DATE: 20170310
